FAERS Safety Report 9564717 (Version 1)
Quarter: 2013Q3

REPORT INFORMATION
  Report Type: Spontaneous
  Country: US (occurrence: US)
  Receive Date: 20130930
  Receipt Date: 20130930
  Transmission Date: 20140515
  Serious: No
  Sender: FDA-Public Use
  Company Number: US-PFIZER INC-2013277526

PATIENT
  Age: 28 Year
  Sex: Male
  Weight: 75.3 kg

DRUGS (2)
  1. NICOTROL INHALER [Suspect]
     Indication: SMOKING CESSATION THERAPY
     Dosage: UNK
     Dates: start: 20130924
  2. BUPROPION HYDROCHLORIDE [Concomitant]
     Indication: SMOKING CESSATION THERAPY
     Dosage: 150 MG, DAILY
     Route: 048

REACTIONS (4)
  - Poor quality drug administered [Unknown]
  - Product quality issue [Unknown]
  - Feeling abnormal [Unknown]
  - Throat irritation [Unknown]
